FAERS Safety Report 23910935 (Version 1)
Quarter: 2024Q2

REPORT INFORMATION
  Report Type: Spontaneous
  Country: US (occurrence: None)
  Receive Date: 20240526
  Receipt Date: 20240526
  Transmission Date: 20240716
  Serious: No
  Sender: FDA-Public Use
  Company Number: None

PATIENT
  Age: 49 Year
  Sex: Male
  Weight: 99 kg

DRUGS (10)
  1. VTAMA [Suspect]
     Active Substance: TAPINAROF
     Indication: Psoriasis
     Dosage: 60 GRAMS DAILY TOPICAL
     Route: 061
     Dates: start: 20240519, end: 20240523
  2. ESCITALOPRAM [Concomitant]
     Active Substance: ESCITALOPRAM OXALATE
  3. LEVOTHYROXINE [Concomitant]
     Active Substance: LEVOTHYROXINE\LEVOTHYROXINE SODIUM
  4. BUPROPION [Concomitant]
     Active Substance: BUPROPION
  5. ARMODAFINIL [Concomitant]
     Active Substance: ARMODAFINIL
  6. LEVOMEFOLIC ACID [Concomitant]
     Active Substance: LEVOMEFOLIC ACID
  7. LITHIUM [Concomitant]
     Active Substance: LITHIUM
  8. SKYRIZI [Concomitant]
     Active Substance: RISANKIZUMAB-RZAA
  9. ROSUVASTATIN [Concomitant]
     Active Substance: ROSUVASTATIN
  10. TESTOSTERONE CYPIONATE [Concomitant]
     Active Substance: TESTOSTERONE CYPIONATE

REACTIONS (2)
  - Application site pruritus [None]
  - Hypersensitivity [None]

NARRATIVE: CASE EVENT DATE: 20240522
